FAERS Safety Report 7081324-9 (Version None)
Quarter: 2010Q4

REPORT INFORMATION
  Report Type: 
  Country: None (occurrence: None)
  Receive Date: 20101103
  Receipt Date: 20101021
  Transmission Date: 20110411
  Serious: Yes (Other)
  Sender: FDA-Public Use
  Company Number: PHHY2010JP58186

PATIENT
  Age: 80 Year
  Sex: Female

DRUGS (5)
  1. DIOVAN [Suspect]
     Dosage: 40 MG DAILY
     Route: 048
     Dates: start: 20090821, end: 20091113
  2. LIPITOR [Concomitant]
     Dosage: 10 MG DAILY
     Route: 048
  3. GASTER [Concomitant]
     Dosage: 10 MG DAILY
     Route: 048
  4. BIOFERMIN [Concomitant]
     Dosage: 3 G
     Route: 048
  5. YODEL [Concomitant]
     Dosage: 1 DF
     Route: 048

REACTIONS (1)
  - BLOOD POTASSIUM INCREASED [None]
